FAERS Safety Report 19767937 (Version 3)
Quarter: 2021Q3

REPORT INFORMATION
  Report Type: Spontaneous
  Country: BR (occurrence: BR)
  Receive Date: 20210830
  Receipt Date: 20210920
  Transmission Date: 20211014
  Serious: Yes (Other)
  Sender: FDA-Public Use
  Company Number: BR-TAKEDA-2021TUS053802

PATIENT
  Age: 35 Year
  Sex: Male
  Weight: 69 kg

DRUGS (5)
  1. CANNABIS [Concomitant]
     Active Substance: CANNABIS SATIVA SUBSP. INDICA TOP
     Indication: DRUG DEPENDENCE
     Dosage: UNK UNK, BID
  2. ENTYVIO [Suspect]
     Active Substance: VEDOLIZUMAB
     Indication: COLITIS ULCERATIVE
     Dosage: 300 MILLIGRAM
     Route: 042
     Dates: start: 20210827
  3. MESACOL MMX [Suspect]
     Active Substance: MESALAMINE
     Indication: COLITIS ULCERATIVE
     Dosage: 1200 MILLIGRAM, BID
     Route: 065
     Dates: start: 201804, end: 20210827
  4. URSACOL [Concomitant]
     Active Substance: URSODIOL
     Indication: LIVER DISORDER
     Dosage: 300 MILLIGRAM, TID
  5. SULFASALAZINE EN [Concomitant]
     Active Substance: SULFASALAZINE
     Dosage: UNK

REACTIONS (6)
  - Faeces soft [Unknown]
  - Cholangitis sclerosing [Unknown]
  - Inappropriate schedule of product administration [Unknown]
  - Colitis ulcerative [Not Recovered/Not Resolved]
  - Somnolence [Recovered/Resolved]
  - Malaise [Recovered/Resolved]

NARRATIVE: CASE EVENT DATE: 20210827
